FAERS Safety Report 14381722 (Version 1)
Quarter: 2018Q1

REPORT INFORMATION
  Report Type: Other
  Country: US (occurrence: US)
  Receive Date: 20180112
  Receipt Date: 20180112
  Transmission Date: 20180509
  Serious: Yes (Death)
  Sender: FDA-Public Use
  Company Number: US-GENUS_LIFESCIENCES-USA-POI0580201800066

PATIENT
  Age: 73 Year
  Sex: Female

DRUGS (14)
  1. DONEPEZIL. [Suspect]
     Active Substance: DONEPEZIL
     Dates: end: 2016
  2. ALPRAZOLAM. [Suspect]
     Active Substance: ALPRAZOLAM
     Dates: end: 2016
  3. LEVOLET (LEVOTHYROXINE) [Suspect]
     Active Substance: LEVOTHYROXINE
     Dates: end: 2016
  4. MELOXICAM. [Suspect]
     Active Substance: MELOXICAM
     Dates: end: 2016
  5. OMEPRAZOLE. [Suspect]
     Active Substance: OMEPRAZOLE
     Dates: end: 2016
  6. TRAZODONE [Suspect]
     Active Substance: TRAZODONE HYDROCHLORIDE
     Dates: end: 2016
  7. LURASIDONE [Suspect]
     Active Substance: LURASIDONE
     Dates: end: 2016
  8. VITAMIN D [Suspect]
     Active Substance: CHOLECALCIFEROL
     Dates: end: 2016
  9. DULOXETINE. [Suspect]
     Active Substance: DULOXETINE
     Dates: end: 2016
  10. BACLOFEN. [Suspect]
     Active Substance: BACLOFEN
     Dates: end: 2016
  11. METOPROLOL. [Suspect]
     Active Substance: METOPROLOL
     Dates: end: 2016
  12. ZOLPIDEM [Suspect]
     Active Substance: ZOLPIDEM\ZOLPIDEM TARTRATE
     Dates: end: 2016
  13. SALICYLATE [Suspect]
     Active Substance: SALICYLIC ACID
     Dates: end: 2016
  14. BENZTROPINE. [Suspect]
     Active Substance: BENZTROPINE
     Dates: end: 2016

REACTIONS (1)
  - Completed suicide [Fatal]

NARRATIVE: CASE EVENT DATE: 2016
